FAERS Safety Report 9543767 (Version 1)
Quarter: 2013Q3

REPORT INFORMATION
  Report Type: Spontaneous
  Country: US (occurrence: US)
  Receive Date: 20130923
  Receipt Date: 20130923
  Transmission Date: 20140515
  Serious: Yes (Other)
  Sender: FDA-Public Use
  Company Number: CHPA2013US014452

PATIENT
  Age: 59 Year
  Sex: Male

DRUGS (7)
  1. NODOZ [Suspect]
     Indication: SOMNOLENCE
     Dosage: 2 DF, QD
     Route: 048
  2. NODOZ [Suspect]
     Indication: MEMORY IMPAIRMENT
  3. EXCEDRIN ES BACK + BODY [Suspect]
     Indication: BACK PAIN
     Dosage: 1 DF, PRN
     Route: 048
  4. EXCEDRIN ES BACK + BODY [Suspect]
     Indication: MUSCLE SPASMS
  5. VIVARIN [Suspect]
     Dosage: UNK,UNK
  6. CIALIS [Concomitant]
     Dosage: UNK,UNK
  7. VIAGRA [Concomitant]
     Dosage: UNK,UNK

REACTIONS (14)
  - Prostate cancer [Recovered/Resolved]
  - Hypertension [Unknown]
  - Hernia [Recovered/Resolved]
  - Alcoholism [Unknown]
  - Arthritis [Not Recovered/Not Resolved]
  - Gastrooesophageal reflux disease [Unknown]
  - Back pain [Unknown]
  - Muscle spasms [Unknown]
  - Incontinence [Not Recovered/Not Resolved]
  - Nervous system disorder [Unknown]
  - Therapeutic response unexpected [Unknown]
  - Off label use [Unknown]
  - Incorrect drug administration duration [Unknown]
  - Underdose [Unknown]
